FAERS Safety Report 7099956-0 (Version None)
Quarter: 2010Q4

REPORT INFORMATION
  Report Type: 
  Country: None (occurrence: None)
  Receive Date: 20101112
  Receipt Date: 20101109
  Transmission Date: 20110411
  Serious: Yes (Hospitalization, Other)
  Sender: FDA-Public Use
  Company Number: US-BAYER-201040570NA

PATIENT
  Age: 62 Year
  Sex: Female

DRUGS (2)
  1. CIPRO [Suspect]
     Indication: BACTERAEMIA
     Dosage: TOTAL DAILY DOSE: 800 MG
     Route: 042
     Dates: start: 20101031, end: 20101108
  2. CIPRO [Concomitant]
     Dates: start: 20101108

REACTIONS (1)
  - INJECTION SITE PAIN [None]
